FAERS Safety Report 20054672 (Version 1)
Quarter: 2021Q4

REPORT INFORMATION
  Report Type: Spontaneous
  Country: IT (occurrence: IT)
  Receive Date: 20211110
  Receipt Date: 20211110
  Transmission Date: 20220303
  Serious: Yes (Death)
  Sender: FDA-Public Use
  Company Number: IT-NOVARTISPH-NVSC2021IT257124

PATIENT
  Age: 71 Year
  Sex: Male

DRUGS (2)
  1. TIZANIDINE [Suspect]
     Active Substance: TIZANIDINE
     Indication: Urinary tract infection
     Dosage: 24 MG, UNKNOWN
     Route: 065
  2. CIPROFLOXACIN [Suspect]
     Active Substance: CIPROFLOXACIN
     Indication: Urinary tract infection
     Dosage: UNK
     Route: 065

REACTIONS (6)
  - Muscular weakness [Fatal]
  - Hypotonia [Fatal]
  - Hypotension [Fatal]
  - Organ failure [Fatal]
  - Product use in unapproved indication [Unknown]
  - Contraindicated product administered [Unknown]
